FAERS Safety Report 9245551 (Version 1)
Quarter: 2013Q1

REPORT INFORMATION
  Report Type: Spontaneous
  Country: US (occurrence: None)
  Receive Date: 20121130
  Receipt Date: 20121130
  Transmission Date: 20140127
  Serious: Yes (Hospitalization, Other)
  Sender: FDA-Public Use
  Company Number: 1202USA02450

PATIENT
  Age: 58 Year
  Sex: Female
  Weight: 63.5 kg

DRUGS (15)
  1. FOSAMAX [Suspect]
     Indication: OSTEOPENIA
     Dosage: 70MG, QW, ORAL
     Route: 048
     Dates: start: 200502, end: 200802
  2. FOSAMAX [Suspect]
     Dosage: 70MG, QW, ORAL
     Route: 048
     Dates: start: 20080303, end: 201002
  3. REMICADE (INFLIXIMAB) [Concomitant]
  4. LEXAPRO (ESCITALOPRAM OXALATE) [Concomitant]
  5. RESTORIL (CHLORMEZANONE) [Concomitant]
  6. EVISTA (RALOXIFENE HYDROCHLORIDE) [Concomitant]
  7. XANAX (ALPRAZOLAM) [Concomitant]
  8. PREVACID (LANSOPRAZOLE) [Concomitant]
  9. FOLIC ACID (FOLIC ACID) [Concomitant]
  10. SELECTIVE ESTROGEN RECEPTOR MODULATOR [Concomitant]
  11. CYCLOBENZAPRINE HYDROCHLORIDE (CYCLOBENZAPRINCE HYDROCHLORIDE) [Concomitant]
  12. PLAQUENIL (HYDROXYCHLOROQUINE SULFATE) / ORAL / TABLET, FILM COATED / 200 MILLIGRAM(S) [Concomitant]
  13. SULFASALAZINE (SULFASALAZINE) [Concomitant]
  14. ARAVA (LEFLUNOMIDE) [Concomitant]
  15. FLEXITOL HEEL BALM (DECYL OLEATE, DIMETHICONE, LANOLIN, PETROLATUM, UREA) [Concomitant]

REACTIONS (41)
  - Femur fracture [None]
  - Low turnover osteopathy [None]
  - Vitamin D deficiency [None]
  - Measles [None]
  - Mumps [None]
  - Varicella [None]
  - Tonsillitis [None]
  - Insomnia [None]
  - Fibromyalgia [None]
  - Haemorrhoids [None]
  - Rib fracture [None]
  - Tremor [None]
  - Onychomycosis [None]
  - Skin fissures [None]
  - Paranoia [None]
  - Bronchitis [None]
  - Chronic obstructive pulmonary disease [None]
  - Cellulitis [None]
  - Hypercholesterolaemia [None]
  - Lumbar radiculopathy [None]
  - Mass [None]
  - Adverse event [None]
  - Hypertension [None]
  - Liver function test abnormal [None]
  - Arthroscopy [None]
  - Foot deformity [None]
  - Sinus disorder [None]
  - Anxiety [None]
  - Bronchitis [None]
  - Tachycardia [None]
  - Constipation [None]
  - Muscle spasms [None]
  - Rash [None]
  - Alopecia [None]
  - Abdominal discomfort [None]
  - Ingrowing nail [None]
  - Contusion [None]
  - Osteoarthritis [None]
  - Arthralgia [None]
  - Arthralgia [None]
  - Depression [None]
